FAERS Safety Report 9774861 (Version 1)
Quarter: 2013Q4

REPORT INFORMATION
  Report Type: Spontaneous
  Country: US (occurrence: US)
  Receive Date: 20131220
  Receipt Date: 20131220
  Transmission Date: 20140711
  Serious: No
  Sender: FDA-Public Use
  Company Number: US-GLAXOSMITHKLINE-A1000895A

PATIENT
  Age: 61 Year
  Sex: Male

DRUGS (6)
  1. AVODART [Suspect]
     Indication: BENIGN PROSTATIC HYPERPLASIA
     Dosage: 1CAP PER DAY
     Route: 048
  2. FLOMAX [Suspect]
     Dosage: 1CAP PER DAY
  3. BLOOD THINNER [Concomitant]
  4. ACTONEL [Concomitant]
  5. METOPROLOL [Concomitant]
  6. WELCHOL [Concomitant]

REACTIONS (1)
  - Semen volume decreased [Unknown]
